FAERS Safety Report 16373166 (Version 1)
Quarter: 2019Q2

REPORT INFORMATION
  Report Type: Other
  Country: TR (occurrence: TR)
  Receive Date: 20190530
  Receipt Date: 20190530
  Transmission Date: 20190711
  Serious: Yes (Death, Life-Threatening, Hospitalization)
  Sender: FDA-Public Use
  Company Number: TR-NOSTRUM LABORATORIES, INC.-2067602

PATIENT
  Age: 16 Year
  Sex: Female

DRUGS (1)
  1. METFORMIN HYDROCHLORIDE EXTENDED-RELEASE [Suspect]
     Active Substance: METFORMIN HYDROCHLORIDE
     Indication: INTENTIONAL OVERDOSE
     Route: 048

REACTIONS (6)
  - Cardiac arrest [Not Recovered/Not Resolved]
  - Pancreatitis acute [Fatal]
  - Hyperglycaemia [Not Recovered/Not Resolved]
  - Lactic acidosis [Fatal]
  - Intentional overdose [Fatal]
  - Multiple organ dysfunction syndrome [Fatal]
